FAERS Safety Report 9153024 (Version 1)
Quarter: 2013Q1

REPORT INFORMATION
  Report Type: Spontaneous
  Country: US (occurrence: None)
  Receive Date: 20130301
  Receipt Date: 20130301
  Transmission Date: 20140127
  Serious: Yes (Other)
  Sender: FDA-Public Use
  Company Number: None

PATIENT
  Age: 80 Year
  Sex: Female
  Weight: 64.41 kg

DRUGS (2)
  1. ESCITALOPRAM [Suspect]
     Indication: GENERALISED ANXIETY DISORDER
     Route: 048
     Dates: start: 20110601, end: 20130228
  2. ESCITALOPRAM [Suspect]
     Route: 048

REACTIONS (5)
  - Burning sensation [None]
  - Nausea [None]
  - Nervousness [None]
  - Confusional state [None]
  - Chest discomfort [None]
